FAERS Safety Report 7973995-7 (Version None)
Quarter: 2011Q4

REPORT INFORMATION
  Report Type: 
  Country: None (occurrence: None)
  Receive Date: 20111213
  Receipt Date: 20111202
  Transmission Date: 20120403
  Serious: Yes (Other)
  Sender: FDA-Public Use
  Company Number: CA-VIIV HEALTHCARE LIMITED-A0956513A

PATIENT
  Age: 60 Year
  Sex: Male

DRUGS (7)
  1. GAMMA-HYDROXYBUTYRATE [Suspect]
     Indication: PRODUCT USED FOR UNKNOWN INDICATION
     Route: 065
  2. COCAINE [Suspect]
     Indication: PRODUCT USED FOR UNKNOWN INDICATION
     Route: 065
  3. ECSTASY [Suspect]
     Indication: PRODUCT USED FOR UNKNOWN INDICATION
     Dosage: 2TAB SINGLE DOSE
     Route: 065
  4. RITONAVIR [Concomitant]
     Route: 065
  5. ABACAVIR SULFATE AND LAMIVUDINE [Suspect]
     Indication: PRODUCT USED FOR UNKNOWN INDICATION
     Route: 065
  6. REYATAZ [Concomitant]
     Route: 065
  7. ANABOLIC STEROIDS [Concomitant]

REACTIONS (3)
  - CARDIAC ARREST [None]
  - CIRCULATORY COLLAPSE [None]
  - ATRIOVENTRICULAR BLOCK [None]
